FAERS Safety Report 7811613-9 (Version None)
Quarter: 2011Q4

REPORT INFORMATION
  Report Type: 
  Country: None (occurrence: None)
  Receive Date: 20111013
  Receipt Date: 20111003
  Transmission Date: 20120403
  Serious: Yes (Death)
  Sender: FDA-Public Use
  Company Number: JP-BAXTER-2011BH031195

PATIENT
  Age: 81 Year
  Sex: Male
  Weight: 63 kg

DRUGS (2)
  1. FEIBA [Suspect]
     Indication: HAEMOSTASIS
     Route: 042
     Dates: start: 20110503, end: 20110503
  2. ADVATE [Suspect]
     Indication: HAEMOSTASIS
     Route: 065
     Dates: start: 20100901, end: 20100901

REACTIONS (1)
  - MARASMUS [None]
